FAERS Safety Report 6596180-2 (Version None)
Quarter: 2010Q1

REPORT INFORMATION
  Report Type: 
  Country: None (occurrence: None)
  Receive Date: 20100223
  Receipt Date: 20100217
  Transmission Date: 20100710
  Serious: Yes (Death, Hospitalization)
  Sender: FDA-Public Use
  Company Number: US-ROCHE-653212

PATIENT
  Sex: Female
  Weight: 68 kg

DRUGS (1)
  1. CAPECITABINE [Suspect]
     Indication: BREAST CANCER
     Route: 048
     Dates: start: 20090627, end: 20090823

REACTIONS (5)
  - BLOOD POTASSIUM DECREASED [None]
  - CONVULSION [None]
  - DEATH [None]
  - DIARRHOEA [None]
  - DYSPNOEA [None]
